FAERS Safety Report 5091037-0 (Version None)
Quarter: 2006Q3

REPORT INFORMATION
  Report Type: 
  Country: None (occurrence: None)
  Receive Date: 20060829
  Receipt Date: 20051111
  Transmission Date: 20061208
  Serious: No
  Sender: FDA-Public Use
  Company Number: US-GLAXOSMITHKLINE-A0581964A

PATIENT
  Age: 26 Year
  Sex: Female

DRUGS (2)
  1. ZOVIRAX [Suspect]
     Dosage: 200MG TWICE PER DAY
     Route: 048
     Dates: end: 20050901
  2. PRILOSEC [Concomitant]

REACTIONS (1)
  - HERPES SIMPLEX [None]
